FAERS Safety Report 25384438 (Version 1)
Quarter: 2025Q2

REPORT INFORMATION
  Report Type: Other
  Country: FR (occurrence: FR)
  Receive Date: 20250602
  Receipt Date: 20250602
  Transmission Date: 20250717
  Serious: Yes (Death)
  Sender: ZYDUS PHARM
  Company Number: None

PATIENT

DRUGS (14)
  1. FINASTERIDE [Suspect]
     Active Substance: FINASTERIDE
     Indication: Urinary tract disorder
     Route: 048
  2. ACETAMINOPHEN [Suspect]
     Active Substance: ACETAMINOPHEN
     Indication: Pain
     Route: 048
  3. PAROXETINE [Suspect]
     Active Substance: PAROXETINE
     Indication: Depression
     Route: 048
  4. TAMSULOSIN [Suspect]
     Active Substance: TAMSULOSIN
     Indication: Urinary tract disorder
     Route: 048
  5. TRIMEBUTINE [Suspect]
     Active Substance: TRIMEBUTINE
     Indication: Gastrointestinal pain
     Route: 048
  6. PANTOPRAZOLE [Suspect]
     Active Substance: PANTOPRAZOLE
     Indication: Gastrointestinal disorder
     Route: 048
  7. CYAMEMAZINE [Suspect]
     Active Substance: CYAMEMAZINE
     Indication: Mental disorder
     Route: 048
     Dates: start: 20250221
  8. VALIUM [Suspect]
     Active Substance: DIAZEPAM
     Indication: Mental disorder
     Route: 048
  9. LORMETAZEPAM [Suspect]
     Active Substance: LORMETAZEPAM
     Indication: Insomnia
     Route: 048
  10. POLYETHYLENE GLYCOL 4000 [Suspect]
     Active Substance: POLYETHYLENE GLYCOL 4000
     Indication: Constipation
     Route: 048
  11. MESTINON [Suspect]
     Active Substance: PYRIDOSTIGMINE BROMIDE
     Indication: Intestinal atony
     Route: 048
  12. ZUCLOPENTHIXOL ACETATE [Suspect]
     Active Substance: ZUCLOPENTHIXOL ACETATE
     Indication: Mental disorder
     Route: 030
  13. MIANSERIN HYDROCHLORIDE [Suspect]
     Active Substance: MIANSERIN HYDROCHLORIDE
     Indication: Depression
     Route: 048
  14. MINERAL OIL [Suspect]
     Active Substance: MINERAL OIL
     Indication: Constipation
     Route: 048

REACTIONS (1)
  - Cardio-respiratory arrest [Fatal]

NARRATIVE: CASE EVENT DATE: 20250505
